FAERS Safety Report 24206686 (Version 1)
Quarter: 2024Q3

REPORT INFORMATION
  Report Type: Spontaneous
  Country: GR (occurrence: GR)
  Receive Date: 20240813
  Receipt Date: 20240813
  Transmission Date: 20241017
  Serious: Yes (Other)
  Sender: JAZZ
  Company Number: GR-JAZZ PHARMACEUTICALS-2024-GR-001333

PATIENT
  Age: 62 Year
  Sex: Female

DRUGS (3)
  1. VYXEOS [Suspect]
     Active Substance: CYTARABINE\DAUNORUBICIN
     Indication: Acute myeloid leukaemia
     Dosage: 44/100 MG/M2 (DAYS 1, 3, 5)
     Dates: start: 20231017
  2. RISPEFAR [Concomitant]
     Indication: Bipolar disorder
  3. BROMAZEPAM [Concomitant]
     Active Substance: BROMAZEPAM
     Indication: Bipolar disorder

REACTIONS (3)
  - Febrile neutropenia [Recovered/Resolved]
  - Aspergillus infection [Recovered/Resolved]
  - Bone marrow failure [Recovered/Resolved]
